FAERS Safety Report 6292491-9 (Version None)
Quarter: 2009Q3

REPORT INFORMATION
  Report Type: 
  Country: None (occurrence: None)
  Receive Date: 20090730
  Receipt Date: 20090730
  Transmission Date: 20100115
  Serious: Yes (Other)
  Sender: FDA-Public Use
  Company Number: None

PATIENT
  Age: 38 Year
  Sex: Female
  Weight: 79.3795 kg

DRUGS (2)
  1. ZYRTEC [Suspect]
     Indication: PRURITUS
     Dosage: ONE 10MG TABLET DAILY PO
     Route: 048
     Dates: start: 19980101, end: 20090726
  2. ZYRTEC [Suspect]
     Indication: SEASONAL ALLERGY
     Dosage: ONE 10MG TABLET DAILY PO
     Route: 048
     Dates: start: 19980101, end: 20090726

REACTIONS (7)
  - ANHEDONIA [None]
  - DEPRESSION [None]
  - DRUG WITHDRAWAL SYNDROME [None]
  - FATIGUE [None]
  - INSOMNIA [None]
  - SLEEP DISORDER [None]
  - WEIGHT INCREASED [None]
